FAERS Safety Report 7927034-4 (Version None)
Quarter: 2011Q4

REPORT INFORMATION
  Report Type: 
  Country: None (occurrence: None)
  Receive Date: 20111118
  Receipt Date: 20111109
  Transmission Date: 20120403
  Serious: Yes (Hospitalization, Other)
  Sender: FDA-Public Use
  Company Number: CA-BRISTOL-MYERS SQUIBB COMPANY-16227043

PATIENT
  Sex: Female

DRUGS (6)
  1. AVAPRO [Suspect]
     Indication: HYPERTENSION
     Dosage: TILL 23OCT11. RESTARTED: 300MG DAILY FROM 23OCT11.
     Route: 048
     Dates: start: 20110901
  2. ATENOLOL [Concomitant]
     Indication: HYPERTENSION
     Dates: start: 19920101, end: 20110901
  3. TRANDATE [Concomitant]
     Indication: HYPERTENSION
     Dates: start: 20110901, end: 20111001
  4. POTASSIUM [Concomitant]
     Indication: BLOOD POTASSIUM DECREASED
     Dosage: SLOW POTASSIUM.
     Dates: start: 20110901
  5. VITAMIN D [Concomitant]
  6. OMEPRAZOLE [Concomitant]

REACTIONS (9)
  - ASTHENIA [None]
  - PANIC ATTACK [None]
  - MALAISE [None]
  - PARAESTHESIA [None]
  - SLEEP DISORDER [None]
  - DIZZINESS [None]
  - HYPERHIDROSIS [None]
  - NERVOUSNESS [None]
  - HYPERTENSION [None]
